FAERS Safety Report 8300939-0 (Version None)
Quarter: 2012Q2

REPORT INFORMATION
  Report Type: 
  Country: None (occurrence: None)
  Receive Date: 20120417
  Receipt Date: 20120405
  Transmission Date: 20120825
  Serious: Yes (Hospitalization)
  Sender: FDA-Public Use
  Company Number: 1253357

PATIENT
  Age: 72 Year
  Sex: Male

DRUGS (5)
  1. NEULASTA [Concomitant]
  2. (CORTICOSTEROIDS) [Concomitant]
  3. (POLARAMINE) [Concomitant]
  4. CARBOPLATIN [Suspect]
     Indication: LARYNGEAL CANCER
     Dosage: INTRAVENOUS (NOT OTHERWISE SPECIFIED)
     Route: 042
     Dates: start: 20120319, end: 20120319
  5. PACLITAXEL [Suspect]
     Indication: LARYNGEAL CANCER

REACTIONS (5)
  - DYSPHONIA [None]
  - BRONCHOSPASM [None]
  - OXYGEN SATURATION DECREASED [None]
  - NEUTROPENIA [None]
  - PYREXIA [None]
